FAERS Safety Report 18744605 (Version 2)
Quarter: 2021Q1

REPORT INFORMATION
  Report Type: Spontaneous
  Country: JP (occurrence: JP)
  Receive Date: 20210115
  Receipt Date: 20210316
  Transmission Date: 20210419
  Serious: Yes (Death, Other)
  Sender: FDA-Public Use
  Company Number: JP-JAZZ-2021-JP-000478

PATIENT
  Age: 39 Year
  Sex: Male
  Weight: 65.6 kg

DRUGS (1)
  1. DEFITELIO [Suspect]
     Active Substance: DEFIBROTIDE SODIUM
     Indication: VENOOCCLUSIVE LIVER DISEASE
     Dosage: 25 MILLIGRAM/KILOGRAM/DAY
     Route: 042
     Dates: start: 20200611, end: 20200611

REACTIONS (2)
  - Idiopathic pneumonia syndrome [Fatal]
  - Off label use [Unknown]

NARRATIVE: CASE EVENT DATE: 2020
